FAERS Safety Report 5660210-2 (Version None)
Quarter: 2008Q1

REPORT INFORMATION
  Report Type: 
  Country: None (occurrence: None)
  Receive Date: 20080212
  Receipt Date: 20071213
  Transmission Date: 20080703
  Serious: Yes (Other)
  Sender: FDA-Public Use
  Company Number: MC200700725

PATIENT
  Age: 59 Year
  Sex: Female
  Weight: 141.4 kg

DRUGS (11)
  1. ANGIOMAX [Suspect]
     Indication: PERCUTANEOUS CORONARY INTERVENTION
     Dosage: 0.1 MG/KG, SINGLE, INTRAVENOUS; 2.5 MG/KG, HR, INTRAVENOUS
     Route: 042
     Dates: start: 20070802, end: 20070802
  2. ANGIOMAX [Suspect]
     Indication: PERCUTANEOUS CORONARY INTERVENTION
     Dosage: 0.1 MG/KG, SINGLE, INTRAVENOUS; 2.5 MG/KG, HR, INTRAVENOUS
     Route: 042
     Dates: start: 20070802, end: 20070802
  3. ASPIRIN [Concomitant]
  4. LIPITOR [Concomitant]
  5. RHINOCORT [Concomitant]
  6. ALLEGRA [Concomitant]
  7. ATROVENT [Concomitant]
  8. SINGULAIR [Concomitant]
  9. ATENOLOL [Concomitant]
  10. SYNTHROID [Concomitant]
  11. LEVAQUIN [Concomitant]

REACTIONS (1)
  - HAEMATOMA [None]
